FAERS Safety Report 9986029 (Version 1)
Quarter: 2014Q1

REPORT INFORMATION
  Report Type: Report from Study
  Country: US (occurrence: US)
  Receive Date: 20140307
  Receipt Date: 20140307
  Transmission Date: 20141002
  Serious: No
  Sender: FDA-Public Use
  Company Number: US-ABBVIE-13P-163-1089221-00

PATIENT
  Age: 67 Year
  Sex: Female

DRUGS (3)
  1. HUMIRA [Suspect]
     Indication: CROHN^S DISEASE
     Dates: start: 20130312
  2. SYNTHROID [Concomitant]
     Indication: HYPOTHYROIDISM
  3. CYTOMEL [Concomitant]
     Indication: HYPOTHYROIDISM

REACTIONS (4)
  - Injection site discolouration [Not Recovered/Not Resolved]
  - Underdose [Unknown]
  - Candida infection [Not Recovered/Not Resolved]
  - Abdominal pain [Unknown]
